FAERS Safety Report 4440421-4 (Version None)
Quarter: 2004Q3

REPORT INFORMATION
  Report Type: 
  Country: None (occurrence: None)
  Receive Date: 20040903
  Receipt Date: 20040825
  Transmission Date: 20050211
  Serious: Yes (Hospitalization)
  Sender: FDA-Public Use
  Company Number: SE-JNJFOC-20040808759

PATIENT
  Age: 59 Year
  Sex: Female

DRUGS (3)
  1. REMICADE [Suspect]
     Route: 042
  2. BETAPRED [Concomitant]
  3. IMUREL [Concomitant]

REACTIONS (2)
  - INTRA-CEREBRAL ANEURYSM OPERATION [None]
  - SUBARACHNOID HAEMORRHAGE [None]
